FAERS Safety Report 23342947 (Version 1)
Quarter: 2023Q4

REPORT INFORMATION
  Report Type: Spontaneous
  Country: US (occurrence: None)
  Receive Date: 20231226
  Receipt Date: 20231226
  Transmission Date: 20240110
  Serious: No
  Sender: FDA-Public Use
  Company Number: None

PATIENT
  Sex: Female

DRUGS (4)
  1. RASUVO [Suspect]
     Active Substance: METHOTREXATE SODIUM
     Indication: Rheumatoid arthritis
     Dosage: FREQUENCY : WEEKLY;?
     Route: 058
     Dates: start: 202203
  2. NUCALA [Suspect]
  3. NUCALA AUTOINJECTOR PF [Concomitant]
  4. KEVZARA PFS (2 SYR/BOX) [Concomitant]

REACTIONS (2)
  - Drug ineffective [None]
  - Pain [None]
